FAERS Safety Report 23761753 (Version 1)
Quarter: 2024Q2

REPORT INFORMATION
  Report Type: Spontaneous
  Country: CA (occurrence: CA)
  Receive Date: 20240419
  Receipt Date: 20240419
  Transmission Date: 20240716
  Serious: Yes (Hospitalization)
  Sender: FDA-Public Use
  Company Number: CA-PFM-2024-02329

PATIENT

DRUGS (18)
  1. PROPRANOLOL HYDROCHLORIDE [Suspect]
     Active Substance: PROPRANOLOL HYDROCHLORIDE
     Indication: Product used for unknown indication
     Dosage: 10 MG, BID (2/DAY)
     Route: 048
  2. BENZTROPINE MESYLATE [Suspect]
     Active Substance: BENZTROPINE MESYLATE
     Indication: Extrapyramidal disorder
     Dosage: UNK, THREE TIMES DAILY
     Route: 030
  3. BENZTROPINE MESYLATE [Suspect]
     Active Substance: BENZTROPINE MESYLATE
     Indication: Extrapyramidal disorder
     Dosage: UNK, THREE TIMES DAILY
     Route: 048
  4. CLOZAPINE [Suspect]
     Active Substance: CLOZAPINE
     Indication: Psychiatric care
     Dosage: 100 MG, QD (1/DAY)
     Route: 048
  5. CLOZAPINE [Suspect]
     Active Substance: CLOZAPINE
     Dosage: 2.5 ML, QD (1/DAY)
     Route: 048
  6. CLOZAPINE [Suspect]
     Active Substance: CLOZAPINE
     Dosage: 75 ML, QD (1/DAY)
     Route: 048
  7. FLUVOXAMINE [Suspect]
     Active Substance: FLUVOXAMINE
     Indication: Psychiatric care
     Dosage: 12.5 MG, QD (1/DAY)
     Route: 048
  8. FLUVOXAMINE [Suspect]
     Active Substance: FLUVOXAMINE
     Dosage: 50 MG, QD (1/DAY)
     Route: 048
  9. LORAZEPAM [Suspect]
     Active Substance: LORAZEPAM
     Indication: Agitation
     Dosage: UNK, FOUR TIMES DAILY
     Route: 048
  10. LORAZEPAM [Suspect]
     Active Substance: LORAZEPAM
     Indication: Agitation
     Dosage: UNK, FOUR TIMES DAILY
     Route: 030
  11. LOXAPINE SUCCINATE [Suspect]
     Active Substance: LOXAPINE SUCCINATE
     Indication: Agitation
     Dosage: UNK, FOUR TIMES DAILY
     Route: 030
  12. LOXAPINE SUCCINATE [Suspect]
     Active Substance: LOXAPINE SUCCINATE
     Indication: Agitation
     Dosage: UNK, FOUR TIMES DAILY
     Route: 048
  13. QUETIAPINE FUMARATE [Suspect]
     Active Substance: QUETIAPINE FUMARATE
     Indication: Psychiatric care
     Dosage: 500 MG, QD (1/DAY)
     Route: 048
  14. QUETIAPINE FUMARATE [Suspect]
     Active Substance: QUETIAPINE FUMARATE
     Dosage: 100 MG, QD (1/DAY)
     Route: 048
  15. QUETIAPINE FUMARATE [Suspect]
     Active Substance: QUETIAPINE FUMARATE
     Dosage: 400 MG, QD (1/DAY)
     Route: 048
  16. QUETIAPINE FUMARATE [Suspect]
     Active Substance: QUETIAPINE FUMARATE
     Dosage: 450 MG, QD (1/DAY)
     Route: 048
  17. BREXPIPRAZOLE [Concomitant]
     Active Substance: BREXPIPRAZOLE
     Indication: Psychiatric care
     Dosage: 1 MG, QD (1/DAY)
     Route: 048
  18. POLYETHYLENE GLYCOL 3350 [Concomitant]
     Active Substance: POLYETHYLENE GLYCOL 3350
     Indication: Product used for unknown indication
     Dosage: 17 G, QD (1/DAY)
     Route: 048

REACTIONS (18)
  - Condition aggravated [Not Recovered/Not Resolved]
  - Confusional state [Not Recovered/Not Resolved]
  - Depression [Not Recovered/Not Resolved]
  - Drug interaction [Not Recovered/Not Resolved]
  - Drug level below therapeutic [Not Recovered/Not Resolved]
  - Drug level decreased [Not Recovered/Not Resolved]
  - Dysphemia [Not Recovered/Not Resolved]
  - Fatigue [Not Recovered/Not Resolved]
  - Hypoaesthesia [Not Recovered/Not Resolved]
  - Memory impairment [Not Recovered/Not Resolved]
  - Mental disorder [Not Recovered/Not Resolved]
  - Sedation [Not Recovered/Not Resolved]
  - Thinking abnormal [Not Recovered/Not Resolved]
  - Somnolence [Not Recovered/Not Resolved]
  - Constipation [Not Recovered/Not Resolved]
  - Treatment noncompliance [Unknown]
  - Product use issue [Unknown]
  - Off label use [Unknown]
